FAERS Safety Report 7802543-7 (Version None)
Quarter: 2011Q4

REPORT INFORMATION
  Report Type: 
  Country: None (occurrence: None)
  Receive Date: 20111005
  Receipt Date: 20110921
  Transmission Date: 20120403
  Serious: Yes (Hospitalization)
  Sender: FDA-Public Use
  Company Number: TPA2011A06043

PATIENT
  Age: 57 Year
  Sex: Female
  Weight: 81.6475 kg

DRUGS (4)
  1. UNKNOWN THYROID MEDICATION (THYROID THERAPY) [Concomitant]
  2. UNKNOWN DIURETIC #2 (HYDROCHLOROTHIAZIDE [Concomitant]
  3. ACTOS [Suspect]
     Indication: TYPE 2 DIABETES MELLITUS
     Dosage: 30 MG, 1 IN 1 D, PER ORAL
     Route: 048
     Dates: start: 20110301, end: 20110101
  4. UNKNOWN DIURETIC (HYDROCHLOROTHIAZIDE) [Concomitant]

REACTIONS (5)
  - HEART RATE INCREASED [None]
  - CHEST PAIN [None]
  - ARRHYTHMIA [None]
  - DYSPNOEA [None]
  - GAIT DISTURBANCE [None]
